FAERS Safety Report 25220577 (Version 1)
Quarter: 2025Q2

REPORT INFORMATION
  Report Type: Spontaneous
  Country: US (occurrence: None)
  Receive Date: 20250418
  Receipt Date: 20250418
  Transmission Date: 20250717
  Serious: Yes (Death)
  Sender: FDA-CTU
  Company Number: None

PATIENT
  Age: 84 Year
  Sex: Male

DRUGS (1)
  1. PIRFENIDONE [Suspect]
     Active Substance: PIRFENIDONE
     Indication: Idiopathic pulmonary fibrosis
     Dosage: 301MG BID ORAL
     Route: 048
     Dates: start: 20220211, end: 20250312

REACTIONS (2)
  - Hospice care [None]
  - Hodgkin^s disease [None]

NARRATIVE: CASE EVENT DATE: 20250312
